FAERS Safety Report 13352686 (Version 2)
Quarter: 2024Q4

REPORT INFORMATION
  Report Type: Report from Study
  Country: ES (occurrence: ES)
  Receive Date: 20170320
  Receipt Date: 20241106
  Transmission Date: 20250115
  Serious: Yes (Hospitalization)
  Sender: ABBVIE
  Company Number: ES-ABBVIE-17P-144-1906166-00

PATIENT
  Age: 46 Year
  Sex: Female

DRUGS (8)
  1. HUMIRA [Suspect]
     Active Substance: ADALIMUMAB
     Indication: Colitis ulcerative
     Route: 058
     Dates: start: 20160621, end: 20170115
  2. METRONIDAZOLE [Concomitant]
     Active Substance: METRONIDAZOLE
     Indication: Clostridium difficile infection
     Route: 048
     Dates: start: 20170209, end: 20170217
  3. FIDAXOMICIN [Concomitant]
     Active Substance: FIDAXOMICIN
     Indication: Clostridium difficile infection
     Route: 048
     Dates: start: 20170223, end: 20170305
  4. TACROLIMUS [Concomitant]
     Active Substance: TACROLIMUS
     Indication: Colitis ulcerative
     Route: 048
     Dates: start: 20170125, end: 20170302
  5. SALOFALK [Concomitant]
     Indication: Colitis ulcerative
     Dosage: SUSPENSION
     Route: 054
     Dates: start: 20170125, end: 20170207
  6. TRAMADOL [Concomitant]
     Active Substance: TRAMADOL
     Indication: Analgesic therapy
     Route: 048
     Dates: start: 20161024, end: 20170202
  7. CALCIUM CARBONATE\CHOLECALCIFEROL [Concomitant]
     Active Substance: CALCIUM CARBONATE\CHOLECALCIFEROL
     Indication: Mineral supplementation
     Dosage: 500/400 MG IU
     Route: 048
     Dates: start: 20170217
  8. BETAMETHASONE [Concomitant]
     Active Substance: BETAMETHASONE
     Indication: Rotator cuff syndrome
     Dosage: DOSE UNITS: UNKNOWN
     Route: 014
     Dates: start: 20160826, end: 20170202

REACTIONS (2)
  - Colitis ulcerative [Recovered/Resolved]
  - Clostridium difficile infection [Recovered/Resolved]

NARRATIVE: CASE EVENT DATE: 20170302
